FAERS Safety Report 7648748-X (Version None)
Quarter: 2011Q3

REPORT INFORMATION
  Report Type: 
  Country: None (occurrence: None)
  Receive Date: 20110801
  Receipt Date: 20110725
  Transmission Date: 20111222
  Serious: Yes (Hospitalization)
  Sender: FDA-Public Use
  Company Number: PHHO2007FR11318

PATIENT
  Sex: Male

DRUGS (4)
  1. CYCLOSPORINE [Suspect]
     Dosage: 350 MG, QD
  2. PREDNISONE [Concomitant]
     Dosage: 10 MG, UNK
     Dates: start: 20070528
  3. CELLCEPT [Concomitant]
     Dosage: 2 G, UNK
     Dates: start: 20070417
  4. CYCLOSPORINE [Suspect]
     Indication: RENAL TRANSPLANT
     Dosage: 400 MG, QD
     Route: 048
     Dates: start: 20070503

REACTIONS (2)
  - NEPHROPATHY TOXIC [None]
  - HYPERCREATININAEMIA [None]
